FAERS Safety Report 17655700 (Version 1)
Quarter: 2020Q2

REPORT INFORMATION
  Report Type: Spontaneous
  Country: US (occurrence: US)
  Receive Date: 20200410
  Receipt Date: 20200410
  Transmission Date: 20200713
  Serious: Yes (Other)
  Sender: FDA-Public Use
  Company Number: None

PATIENT
  Age: 69 Year
  Sex: Male
  Weight: 87.75 kg

DRUGS (12)
  1. GLIMEPIRIDE. [Concomitant]
     Active Substance: GLIMEPIRIDE
  2. LANTUS [Concomitant]
     Active Substance: INSULIN GLARGINE
  3. MULTIVITAMIN [Concomitant]
     Active Substance: VITAMINS
  4. HYDROCHLOROTHIAZIDE. [Concomitant]
     Active Substance: HYDROCHLOROTHIAZIDE
  5. ATORVASTATIN [Concomitant]
     Active Substance: ATORVASTATIN
  6. AREDS2 RECOMMENDED EYE SUPPLEMENT [Concomitant]
  7. ASPIRIN 81MG [Concomitant]
     Active Substance: ASPIRIN
  8. LISINOPRIL TAB [Suspect]
     Active Substance: LISINOPRIL
     Indication: HYPERTENSION
     Route: 060
  9. LISINOPRIL TAB [Suspect]
     Active Substance: LISINOPRIL
     Indication: HYPERTENSION
     Dosage: ?
     Route: 048
  10. METFORMIN ER [Concomitant]
     Active Substance: METFORMIN HYDROCHLORIDE
  11. LISINOPRIL. [Concomitant]
     Active Substance: LISINOPRIL
  12. VITAMIN D [Concomitant]
     Active Substance: VITAMIN D NOS

REACTIONS (4)
  - Drug ineffective [None]
  - Palpitations [None]
  - Product substitution issue [None]
  - Hypertension [None]

NARRATIVE: CASE EVENT DATE: 20200110
